APPROVED DRUG PRODUCT: NORMOZIDE
Active Ingredient: HYDROCHLOROTHIAZIDE; LABETALOL HYDROCHLORIDE
Strength: 25MG;400MG
Dosage Form/Route: TABLET;ORAL
Application: N019046 | Product #004
Applicant: SCHERING CORP SUB SCHERING PLOUGH CORP
Approved: Apr 6, 1987 | RLD: No | RS: No | Type: DISCN